FAERS Safety Report 14678128 (Version 1)
Quarter: 2018Q1

REPORT INFORMATION
  Report Type: Other
  Country: US (occurrence: US)
  Receive Date: 20180326
  Receipt Date: 20180326
  Transmission Date: 20180509
  Serious: Yes (Other)
  Sender: FDA-Public Use
  Company Number: US-DEXPHARM-20180186

PATIENT
  Age: 62 Year
  Sex: Female

DRUGS (1)
  1. OMEPRAZOLE. [Suspect]
     Active Substance: OMEPRAZOLE
     Indication: ANTACID THERAPY
     Dosage: HIGH DOSE

REACTIONS (4)
  - Streptococcal infection [Unknown]
  - Lipase increased [Recovered/Resolved]
  - Metabolic alkalosis [Unknown]
  - Candida infection [Unknown]
